FAERS Safety Report 5123264-8 (Version None)
Quarter: 2006Q4

REPORT INFORMATION
  Report Type: 
  Country: None (occurrence: None)
  Receive Date: 20061009
  Receipt Date: 20061005
  Transmission Date: 20070319
  Serious: Yes (Disabling)
  Sender: FDA-Public Use
  Company Number: BR-GLAXOSMITHKLINE-A0622822A

PATIENT
  Age: 6 Year
  Sex: Female
  Weight: 26 kg

DRUGS (1)
  1. AMOXIL [Suspect]
     Indication: BRONCHOSPASM
     Dosage: 10ML TWICE PER DAY
     Route: 048
     Dates: start: 20061003, end: 20061005

REACTIONS (2)
  - ABASIA [None]
  - MYALGIA [None]
